FAERS Safety Report 10412339 (Version 1)
Quarter: 2014Q2

REPORT INFORMATION
  Report Type: Spontaneous
  Country: US (occurrence: None)
  Receive Date: 20140604
  Receipt Date: 20140604
  Transmission Date: 20141212
  Serious: Yes (Other)
  Sender: FDA-Public Use
  Company Number: 20100201CINRY1349

PATIENT
  Age: 68 Year
  Sex: Female
  Weight: 64.41 kg

DRUGS (9)
  1. CINRYZE [Suspect]
     Indication: HEREDITARY ANGIOEDEMA
     Route: 042
     Dates: start: 200804
  2. CINRYZE [Suspect]
     Indication: PROPHYLAXIS
     Route: 042
     Dates: start: 200804
  3. COSAMINE (GLUCOSAMINE SULFATE) [Concomitant]
  4. TYLENOL (PARACETAMOL) [Concomitant]
  5. LEVOXYL (LEVOTHYROXINE SODIUM) [Concomitant]
  6. PREMARIN (ESTROGENS CONJUGATED) [Concomitant]
  7. HCTZ (HYDROCHLOROTHIAZIDE) [Concomitant]
  8. CLARITIN (GLICLAZIDE) [Concomitant]
  9. ZYRTEC (CETIRIZINE HYDROCHLORIDE) [Concomitant]

REACTIONS (4)
  - Urticaria [None]
  - Inappropriate schedule of drug administration [None]
  - Inappropriate schedule of drug administration [None]
  - Hereditary angioedema [None]
